FAERS Safety Report 4979779-6 (Version None)
Quarter: 2006Q1

REPORT INFORMATION
  Report Type: 
  Country: None (occurrence: None)
  Receive Date: 20060227
  Receipt Date: 20051201
  Transmission Date: 20060701
  Serious: No
  Sender: FDA-Public Use
  Company Number: PHEH2005US13156

PATIENT
  Age: 64 Year
  Sex: Female

DRUGS (7)
  1. ENABLEX [Suspect]
     Dosage: 7.5 MG,
     Dates: start: 20051122, end: 20051130
  2. PULMICORT [Concomitant]
  3. ZYRTEC (CETIRIZINE HYDRODHLORIDE) [Concomitant]
  4. ASCORBIC ACID [Concomitant]
  5. VITAMIN E [Concomitant]
  6. PREMARIN [Concomitant]
  7. SYNTHROID [Concomitant]

REACTIONS (1)
  - RASH [None]
